FAERS Safety Report 6473471-7 (Version None)
Quarter: 2009Q4

REPORT INFORMATION
  Report Type: 
  Country: None (occurrence: None)
  Receive Date: 20091204
  Receipt Date: 20090202
  Transmission Date: 20100525
  Serious: Yes (Hospitalization)
  Sender: FDA-Public Use
  Company Number: US-ELI_LILLY_AND_COMPANY-US200812004877

PATIENT
  Sex: Male

DRUGS (6)
  1. HUMATROPE [Suspect]
     Dosage: UNK, UNKNOWN
  2. SEROQUEL [Concomitant]
     Indication: OBSESSIVE-COMPULSIVE DISORDER
     Dosage: 200 MG, DAILY (1/D)
  3. LOXITANE [Concomitant]
     Indication: OBSESSIVE-COMPULSIVE DISORDER
     Dosage: 5 MG, 2/D
  4. FOCALIN [Concomitant]
     Indication: OBSESSIVE-COMPULSIVE DISORDER
     Dosage: 5 MG, 2/D
  5. BUSPAR [Concomitant]
     Indication: OBSESSIVE-COMPULSIVE DISORDER
     Dosage: 15 MG, 2/D
  6. CELEXA [Concomitant]
     Indication: OBSESSIVE-COMPULSIVE DISORDER
     Dosage: 20 MG, UNKNOWN

REACTIONS (2)
  - BIPOLAR DISORDER [None]
  - OBSESSIVE-COMPULSIVE DISORDER [None]
